FAERS Safety Report 8247870 (Version 6)
Quarter: 2013Q2

REPORT INFORMATION
  Report Type: Report from Study
  Country: CN (occurrence: CN)
  Receive Date: 20111116
  Receipt Date: 20130619
  Transmission Date: 20140414
  Serious: Yes (Life-Threatening)
  Sender: FDA-Public Use
  Company Number: PHHO2011CN018993

PATIENT
  Age: 70 Year
  Sex: Male
  Weight: 57.5 kg

DRUGS (15)
  1. BLINDED ENALAPRIL [Suspect]
     Indication: CARDIAC FAILURE CHRONIC
     Dosage: CODE NOT BROKEN
     Route: 048
     Dates: start: 20110920, end: 20111111
  2. BLINDED LCZ696 [Suspect]
     Indication: CARDIAC FAILURE CHRONIC
     Dosage: CODE NOT BROKEN
     Route: 048
     Dates: start: 20110920, end: 20111111
  3. BLINDED NO TREATMENT RECEIVED [Suspect]
     Indication: CARDIAC FAILURE CHRONIC
     Dosage: CODE NOT BROKEN
     Route: 048
     Dates: start: 20110920, end: 20111111
  4. BISOPROLOL [Suspect]
     Indication: CARDIAC FAILURE CHRONIC
     Dosage: 3.75 MG, QD
     Route: 048
     Dates: start: 20111021, end: 20111111
  5. FUROSEMIDE [Concomitant]
     Indication: CARDIAC FAILURE CHRONIC
     Dosage: 20 MG, QD
     Route: 048
     Dates: start: 20110417, end: 20111111
  6. TORASEMIDE [Concomitant]
     Indication: CARDIAC FAILURE CHRONIC
     Dosage: 20 MG, QD
     Route: 048
     Dates: start: 20110417
  7. SPIRONOLACTONE [Concomitant]
     Indication: CARDIAC FAILURE CHRONIC
     Dosage: 20 MG, QD
     Dates: start: 20110417
  8. ISOSORBIDE MONONITRATE [Concomitant]
     Indication: PROPHYLAXIS
     Dosage: 50 MG, QD
     Route: 048
     Dates: start: 20110417, end: 20111129
  9. ASPIRIN [Concomitant]
     Indication: HYPERTENSION
     Dosage: 100 MG, QD
     Route: 048
     Dates: start: 20110417, end: 20111111
  10. POTASSIUM CHLORIDE [Concomitant]
     Indication: CARDIAC FAILURE CHRONIC
     Dosage: 1 G, TID
     Route: 048
     Dates: start: 20110417
  11. CEFUROXIME [Concomitant]
     Indication: INFECTION PROPHYLAXIS
     Dosage: 1.5 G, BID
     Route: 042
     Dates: start: 20111114, end: 20111117
  12. CEFUROXIME [Concomitant]
     Dosage: 1.5 G, BID
     Route: 042
     Dates: start: 20111124, end: 20111128
  13. ENOXAPARIN [Concomitant]
     Indication: ANTICOAGULANT THERAPY
     Dosage: 0.4 ML, Q12H
     Dates: start: 20111114, end: 20111122
  14. VITAMIN C [Concomitant]
     Indication: HEPATIC FUNCTION ABNORMAL
     Dosage: 100 MG, TID
     Dates: start: 20111122, end: 20111201
  15. BISOPROLOL [Concomitant]
     Indication: CARDIAC FAILURE CHRONIC
     Dosage: 1.25 MG, QD
     Route: 048
     Dates: start: 20111124

REACTIONS (3)
  - Hyperkalaemia [Recovering/Resolving]
  - Condition aggravated [Recovering/Resolving]
  - Atrioventricular block complete [Recovered/Resolved]
